FAERS Safety Report 7534420-3 (Version None)
Quarter: 2011Q2

REPORT INFORMATION
  Report Type: 
  Country: None (occurrence: None)
  Receive Date: 20110608
  Receipt Date: 20110607
  Transmission Date: 20111010
  Serious: Yes (Disabling)
  Sender: FDA-Public Use
  Company Number: GR-MERCK-1106GRC00002

PATIENT
  Age: 65 Year
  Sex: Female

DRUGS (2)
  1. TELMISARTAN [Concomitant]
     Indication: HYPERTENSION
     Route: 048
     Dates: start: 20090101
  2. VYTORIN [Suspect]
     Indication: HYPERCHOLESTEROLAEMIA
     Route: 048
     Dates: start: 20101101, end: 20110520

REACTIONS (1)
  - DYSARTHRIA [None]
